FAERS Safety Report 9107264 (Version 5)
Quarter: 2013Q1

REPORT INFORMATION
  Report Type: Spontaneous
  Country: US (occurrence: US)
  Receive Date: 20130221
  Receipt Date: 20130315
  Transmission Date: 20140127
  Serious: Yes (Death, Hospitalization)
  Sender: FDA-Public Use
  Company Number: US-JNJFOC-20130208528

PATIENT
  Sex: Female
  Weight: 75 kg

DRUGS (21)
  1. XARELTO [Suspect]
     Indication: CEREBROVASCULAR ACCIDENT PROPHYLAXIS
     Route: 048
  2. XARELTO [Suspect]
     Indication: ATRIAL FIBRILLATION
     Route: 048
  3. ALBUTEROL [Concomitant]
     Route: 065
  4. ALPHAGAN [Concomitant]
     Route: 065
  5. BYSTOLIC [Concomitant]
     Route: 065
  6. FERROUS SULFATE [Concomitant]
     Route: 065
  7. GABAPENTIN [Concomitant]
     Route: 065
  8. LATANOPROST [Concomitant]
     Route: 065
  9. LEFLUNOMIDE [Concomitant]
     Route: 065
  10. METFORMIN [Concomitant]
     Route: 065
  11. MINOCYCLINE [Concomitant]
     Route: 065
  12. OMEPRAZOLE [Concomitant]
     Route: 065
  13. VITAMIN D [Concomitant]
     Route: 065
  14. PRADAXA [Concomitant]
     Route: 065
  15. BISACODYL [Concomitant]
     Route: 065
  16. DULCOLAX [Concomitant]
     Route: 065
  17. DOCUSATE SODIUM [Concomitant]
     Route: 065
  18. HYDROMORPHONE [Concomitant]
     Route: 065
  19. MYLANTA NOS [Concomitant]
     Route: 065
  20. MAALOX [Concomitant]
     Route: 065
  21. OXYCODONE [Concomitant]
     Route: 065

REACTIONS (4)
  - Haemorrhage intracranial [Recovered/Resolved]
  - International normalised ratio increased [Recovered/Resolved]
  - Prothrombin time prolonged [Recovered/Resolved]
  - Death [Fatal]
